FAERS Safety Report 7518157-2 (Version None)
Quarter: 2011Q2

REPORT INFORMATION
  Report Type: 
  Country: None (occurrence: None)
  Receive Date: 20110602
  Receipt Date: 20110530
  Transmission Date: 20111010
  Serious: Yes (Hospitalization, Other)
  Sender: FDA-Public Use
  Company Number: US-TEVA-283973USA

PATIENT
  Age: 16 Year
  Sex: Male

DRUGS (3)
  1. CEFOXITIN [Suspect]
  2. TOBRAMYCIN SULFATE [Suspect]
  3. VANCOMYCIN [Suspect]

REACTIONS (1)
  - RENAL FAILURE ACUTE [None]
